FAERS Safety Report 19639438 (Version 1)
Quarter: 2021Q3

REPORT INFORMATION
  Report Type: Spontaneous
  Country: US (occurrence: US)
  Receive Date: 20210730
  Receipt Date: 20210730
  Transmission Date: 20211014
  Serious: Yes (Other)
  Sender: FDA-Public Use
  Company Number: US-TORRENT-00011188

PATIENT
  Sex: Male

DRUGS (2)
  1. LATANOPROST. [Concomitant]
     Active Substance: LATANOPROST
     Indication: CORNEAL DISORDER
     Dosage: UNKNOWN
  2. MINOCYCLINE [Suspect]
     Active Substance: MINOCYCLINE HYDROCHLORIDE
     Indication: CORNEAL DISORDER
     Dosage: 50 MG BID
     Route: 048

REACTIONS (1)
  - Pigmentation disorder [Unknown]
